FAERS Safety Report 25968130 (Version 1)
Quarter: 2025Q4

REPORT INFORMATION
  Report Type: Spontaneous
  Country: CO (occurrence: CO)
  Receive Date: 20251028
  Receipt Date: 20251028
  Transmission Date: 20260118
  Serious: Yes (Death)
  Sender: ASTELLAS
  Company Number: CO-PFIZER INC-PV202500125886

PATIENT
  Sex: Male

DRUGS (1)
  1. PADCEV [Suspect]
     Active Substance: ENFORTUMAB VEDOTIN-EJFV
     Indication: Bladder cancer
     Dosage: 1.25 MG/KG, CYCLIC
     Route: 042
     Dates: start: 20250412

REACTIONS (1)
  - Death [Fatal]

NARRATIVE: CASE EVENT DATE: 20251007
